FAERS Safety Report 8450734 (Version 2)
Quarter: 2013Q2

REPORT INFORMATION
  Report Type: Spontaneous
  Country: US (occurrence: None)
  Receive Date: 20120203
  Receipt Date: 20120509
  Transmission Date: 20140414
  Serious: Yes (Other)
  Sender: FDA-Public Use
  Company Number: 2011000210

PATIENT
  Age: 48 Year
  Sex: Male

DRUGS (2)
  1. ULESFIA [Suspect]
     Indication: LICE INFESTATION
     Dosage: 1/2 BOTTE
     Dates: start: 20111030, end: 20111102
  2. IBUPROFEN (IBUPROFEN) [Concomitant]

REACTIONS (2)
  - MEDICATION ERROR [None]
  - DRUG INEFFECTIVE [None]
